FAERS Safety Report 5642919-X (Version None)
Quarter: 2008Q1

REPORT INFORMATION
  Report Type: 
  Country: None (occurrence: None)
  Receive Date: 20080227
  Receipt Date: 20080227
  Transmission Date: 20080703
  Serious: Yes (Life-Threatening, Hospitalization)
  Sender: FDA-Public Use
  Company Number: None

PATIENT
  Sex: Female
  Weight: 54.4316 kg

DRUGS (1)
  1. LIDODERM [Suspect]
     Indication: INFLUENZA
     Dosage: APPLY UP TO TRHEE PATCH DAILY  OTHER
     Route: 050
     Dates: start: 20080206, end: 20080206

REACTIONS (11)
  - BURNING SENSATION [None]
  - ERYTHEMA [None]
  - FEAR [None]
  - FEELING HOT [None]
  - HYPOAESTHESIA [None]
  - JOINT LOCK [None]
  - MALAISE [None]
  - MOVEMENT DISORDER [None]
  - NAUSEA [None]
  - PARAESTHESIA [None]
  - SELF-MEDICATION [None]
